FAERS Safety Report 21101201 (Version 1)
Quarter: 2022Q3

REPORT INFORMATION
  Report Type: Spontaneous
  Country: BR (occurrence: BR)
  Receive Date: 20220719
  Receipt Date: 20220719
  Transmission Date: 20221027
  Serious: Yes (Death, Hospitalization, Other)
  Sender: FDA-Public Use
  Company Number: BR-JNJFOC-20220725766

PATIENT
  Age: 85 Year
  Sex: Female

DRUGS (2)
  1. IMBRUVICA [Suspect]
     Active Substance: IBRUTINIB
     Indication: Mantle cell lymphoma
     Dosage: 4 CAPSULES
     Route: 048
  2. LEVOTHYROXINE [Concomitant]
     Active Substance: LEVOTHYROXINE
     Indication: Hypothyroidism
     Route: 065

REACTIONS (8)
  - Death [Fatal]
  - Acute respiratory distress syndrome [Recovered/Resolved]
  - Pleural effusion [Recovered/Resolved]
  - Rash [Recovered/Resolved]
  - Skin haemorrhage [Recovered/Resolved]
  - Ecchymosis [Recovered/Resolved]
  - Abdominal distension [Unknown]
  - Weight decreased [Unknown]
